FAERS Safety Report 8285535 (Version 3)
Quarter: 2012Q4

REPORT INFORMATION
  Report Type: 
  Country: US (occurrence: US)
  Receive Date: 20111213
  Receipt Date: 20121221
  Transmission Date: 20130627
  Serious: Yes (Other)
  Sender: FDA-Public Use
  Company Number: US-ROCHE-1019497

PATIENT
  Age: 14 Year
  Sex: Female
  Weight: 77.18 kg

DRUGS (1)
  1. ACCUTANE [Suspect]
     Indication: ACNE
     Route: 065
     Dates: start: 20001108, end: 20010615

REACTIONS (11)
  - Colitis ulcerative [Unknown]
  - Depression [Unknown]
  - Stress [Unknown]
  - Inflammatory bowel disease [Unknown]
  - Anal fissure [Unknown]
  - Anal abscess [Recovered/Resolved]
  - Rectal abscess [Recovered/Resolved]
  - Irritable bowel syndrome [Unknown]
  - Lip dry [Unknown]
  - Dry skin [Unknown]
  - Chapped lips [Unknown]
